FAERS Safety Report 8214520-5 (Version None)
Quarter: 2012Q1

REPORT INFORMATION
  Report Type: 
  Country: None (occurrence: None)
  Receive Date: 20120316
  Receipt Date: 20120316
  Transmission Date: 20120608
  Serious: No
  Sender: FDA-Public Use
  Company Number: None

PATIENT
  Age: 35 Year
  Sex: Female
  Weight: 50.802 kg

DRUGS (1)
  1. LATISSE [Suspect]
     Indication: THERAPEUTIC PROCEDURE
     Dosage: 1 DROP APPLIED TO EACH EYELID
     Dates: start: 20120205, end: 20120315

REACTIONS (2)
  - MADAROSIS [None]
  - TRICHORRHEXIS [None]
